FAERS Safety Report 12194062 (Version 2)
Quarter: 2016Q2

REPORT INFORMATION
  Report Type: Spontaneous
  Country: GB (occurrence: GB)
  Receive Date: 20160321
  Receipt Date: 20160414
  Transmission Date: 20160815
  Serious: Yes (Death)
  Sender: FDA-Public Use
  Company Number: GB-ALKEM-001533

PATIENT
  Age: 67 Year
  Sex: Male
  Weight: 81 kg

DRUGS (13)
  1. OLANZAPINE. [Suspect]
     Active Substance: OLANZAPINE
     Indication: BIPOLAR I DISORDER
     Dosage: THE DOSE WAS FURTHER REDUCED TO 12.5 MG FROM APR TO NOV-2015.
     Route: 048
     Dates: start: 201511, end: 20151215
  2. DIPROBASE [Concomitant]
     Active Substance: CHLOROCRESOL
     Dosage: APPLICATION TO LEGS.
     Route: 061
  3. BETAMETHASONE. [Concomitant]
     Active Substance: BETAMETHASONE
     Dosage: AS PER LYMPHOEDEMA NURSE
     Route: 061
  4. OXYBUTYNIN [Concomitant]
     Active Substance: OXYBUTYNIN
  5. OMEPRAZOLE. [Concomitant]
     Active Substance: OMEPRAZOLE
     Dosage: IN THE MORNING
  6. FUROSEMIDE. [Concomitant]
     Active Substance: FUROSEMIDE
     Dosage: IN THE MORNING
  7. SIMVASTATIN. [Concomitant]
     Active Substance: SIMVASTATIN
     Dosage: AT NIGHT
  8. PARACETAMOL [Concomitant]
     Active Substance: ACETAMINOPHEN
  9. FOLIC ACID. [Concomitant]
     Active Substance: FOLIC ACID
     Dosage: IN THE MORNING
  10. LACTULOSE. [Concomitant]
     Active Substance: LACTULOSE
  11. PHENOXYMETHYLPENICILLIN [Concomitant]
     Active Substance: PENICILLIN V
     Dosage: LONG TERM.
  12. ACETYLSALICYLIC ACID [Concomitant]
     Active Substance: ASPIRIN
     Dosage: IN THE MORNING
     Route: 048
  13. CLIOQUINOL [Concomitant]
     Active Substance: CLIOQUINOL
     Dosage: AS PER LYMPHOEDEMA NURSE

REACTIONS (1)
  - Pulmonary embolism [Fatal]

NARRATIVE: CASE EVENT DATE: 20151215
